FAERS Safety Report 18522271 (Version 1)
Quarter: 2020Q4

REPORT INFORMATION
  Report Type: Spontaneous
  Country: US (occurrence: US)
  Receive Date: 20201119
  Receipt Date: 20201119
  Transmission Date: 20210114
  Serious: Yes (Disabling)
  Sender: FDA-Public Use
  Company Number: None

PATIENT
  Age: 93 Year
  Sex: Female
  Weight: 47.25 kg

DRUGS (10)
  1. VITAMIN B12 [Concomitant]
     Active Substance: CYANOCOBALAMIN
  2. SYNTHROID [Concomitant]
     Active Substance: LEVOTHYROXINE SODIUM
  3. WARFARIN [Concomitant]
     Active Substance: WARFARIN
  4. PEPCID [Concomitant]
     Active Substance: FAMOTIDINE
  5. PANTOPRAZOLE 40MG TABLETS [Suspect]
     Active Substance: PANTOPRAZOLE
     Indication: OESOPHAGEAL SPASM
     Dosage: ?          QUANTITY:1 TABLET(S);?
     Route: 048
     Dates: start: 20200827, end: 20201010
  6. CLARATIN [Concomitant]
  7. VITAMIN D [Concomitant]
     Active Substance: VITAMIN D NOS
  8. MAGNESIUM OXIDE. [Concomitant]
     Active Substance: MAGNESIUM OXIDE
  9. DILTIAZEM. [Concomitant]
     Active Substance: DILTIAZEM
  10. LASIX [Concomitant]
     Active Substance: FUROSEMIDE

REACTIONS (5)
  - Myalgia [None]
  - Arthralgia [None]
  - Dizziness [None]
  - Blood urine present [None]
  - Pain in extremity [None]

NARRATIVE: CASE EVENT DATE: 20201010
